FAERS Safety Report 8684920 (Version 2)
Quarter: 2012Q4

REPORT INFORMATION
  Report Type: 
  Country: US (occurrence: US)
  Receive Date: 20120726
  Receipt Date: 20120828
  Transmission Date: 20130627
  Serious: Yes (Hospitalization, Other)
  Sender: FDA-Public Use
  Company Number: US-BRISTOL-MYERS SQUIBB COMPANY-16775371

PATIENT
  Sex: Male

DRUGS (7)
  1. METFORMIN HYDROCHLORIDE [Suspect]
     Route: 065
  2. LANTUS [Suspect]
     Indication: TYPE 2 DIABETES MELLITUS
     Dosage: 35-50 units daily
parenteral inj, 100IU/ml 4-5years
     Route: 058
  3. GLYBURIDE [Suspect]
  4. BYETTA [Suspect]
  5. SPIRONOLACTONE [Concomitant]
  6. BUMEX [Concomitant]
  7. METOPROLOL [Concomitant]

REACTIONS (3)
  - Renal failure [Unknown]
  - Limb injury [Unknown]
  - Blood glucose increased [Unknown]
